FAERS Safety Report 10084315 (Version 1)
Quarter: 2014Q2

REPORT INFORMATION
  Report Type: Spontaneous
  Country: US (occurrence: US)
  Receive Date: 20140417
  Receipt Date: 20140417
  Transmission Date: 20141212
  Serious: Yes (Other)
  Sender: FDA-Public Use
  Company Number: PHHY2014US047163

PATIENT
  Age: 78 Year
  Sex: Male

DRUGS (7)
  1. ACETYLSALICYLIC ACID [Suspect]
  2. AMIODARONE [Concomitant]
     Indication: ATRIAL FIBRILLATION
  3. WARFARIN [Concomitant]
  4. SIMVASTATIN [Concomitant]
  5. METOPROLOL [Concomitant]
  6. FINASTERIDE [Concomitant]
  7. TAMSULOSIN [Concomitant]

REACTIONS (1)
  - Haemorrhage [Unknown]
